FAERS Safety Report 4785419-1 (Version None)
Quarter: 2005Q3

REPORT INFORMATION
  Report Type: 
  Country: None (occurrence: None)
  Receive Date: 20050929
  Receipt Date: 20050919
  Transmission Date: 20060218
  Serious: Yes (Other)
  Sender: FDA-Public Use
  Company Number: 2005109136

PATIENT
  Age: 50 Year
  Sex: Female

DRUGS (2)
  1. NORVASC [Suspect]
     Indication: ILL-DEFINED DISORDER
  2. LIPITOR [Suspect]
     Indication: ILL-DEFINED DISORDER

REACTIONS (2)
  - HALLUCINATION, AUDITORY [None]
  - SUICIDAL IDEATION [None]
